FAERS Safety Report 5320804-0 (Version None)
Quarter: 2007Q2

REPORT INFORMATION
  Report Type: 
  Country: None (occurrence: None)
  Receive Date: 20070502
  Receipt Date: 20070423
  Transmission Date: 20071010
  Serious: Yes (Death, Hospitalization)
  Sender: FDA-Public Use
  Company Number: CLOP-10448

PATIENT
  Age: 40 Year
  Sex: Male
  Weight: 101.2 kg

DRUGS (22)
  1. CLOFARABINE. MFR: GENZYME [Suspect]
     Indication: ACUTE LYMPHOCYTIC LEUKAEMIA
     Dosage: 34 MG DAILY IV
     Route: 042
     Dates: start: 20061026, end: 20061027
  2. CLOFARABINE. MFR. GENZYME [Suspect]
     Indication: ACUTE LYMPHOCYTIC LEUKAEMIA
     Dosage: 34 MG DAILY IV
     Route: 042
     Dates: start: 20061102, end: 20061103
  3. CLOPARABINE. MFR: GENZYME [Suspect]
     Indication: ACUTE LYMPHOCYTIC LEUKAEMIA
     Dosage: 35 MG DAILY IV
     Route: 042
     Dates: start: 20061228, end: 20061229
  4. CLOFARABINE. MFR: GENZYME [Suspect]
     Indication: ACUTE LYMPHOCYTIC LEUKAEMIA
     Dosage: 35 MG DAILY IV
     Route: 042
     Dates: start: 20070104, end: 20070105
  5. CYCLOPHOSPHAMIDE [Suspect]
     Indication: ACUTE LYMPHOCYTIC LEUKAEMIA
     Dosage: 680 MG DAILY IV
     Route: 042
     Dates: start: 20061025, end: 20061026
  6. CYCLOPHOSPHAMIDE [Suspect]
     Indication: ACUTE LYMPHOCYTIC LEUKAEMIA
     Dosage: 1360 MG DAILY IV
     Route: 042
     Dates: start: 20061027, end: 20061027
  7. CYCLOPHOSPHAMIDE [Suspect]
     Indication: ACUTE LYMPHOCYTIC LEUKAEMIA
     Dosage: 1360 MG DAILY IV
     Route: 042
     Dates: start: 20061102, end: 20061103
  8. CYCLOPHOSPHAMIDE [Suspect]
     Indication: ACUTE LYMPHOCYTIC LEUKAEMIA
     Dosage: 1375 MG DAILY IV
     Route: 042
     Dates: start: 20061228, end: 20061229
  9. CYCLOPHOSPHAMIDE [Suspect]
     Indication: ACUTE LYMPHOCYTIC LEUKAEMIA
     Dosage: 1375 MG DAILY IV
     Route: 042
     Dates: start: 20070104, end: 20070105
  10. ACETAMINOPHEN [Concomitant]
  11. ALLOPURINOL [Concomitant]
  12. VORICONAZOLE [Concomitant]
  13. CEFEPIME [Concomitant]
  14. AUGMENTIN '125' [Concomitant]
  15. BACTRIM [Concomitant]
  16. COTRIMOXAZOLE [Concomitant]
  17. AMBISOME [Concomitant]
  18. PIPTAZ [Concomitant]
  19. BENADRYL [Concomitant]
  20. VALACYCLOVIR [Concomitant]
  21. VANCOMYCIN [Concomitant]
  22. POTASSIUM CHLORIDE [Concomitant]

REACTIONS (22)
  - ADENOVIRUS INFECTION [None]
  - ALANINE AMINOTRANSFERASE INCREASED [None]
  - BK VIRUS INFECTION [None]
  - BLOOD ALKALINE PHOSPHATASE INCREASED [None]
  - CHRONIC SINUSITIS [None]
  - CULTURE URINE POSITIVE [None]
  - DISEASE PROGRESSION [None]
  - FEBRILE NEUTROPENIA [None]
  - HAEMATURIA [None]
  - HYDRONEPHROSIS [None]
  - LUNG INFILTRATION [None]
  - MALAISE [None]
  - NAUSEA [None]
  - PANCYTOPENIA [None]
  - PERICARDIAL EFFUSION [None]
  - PLEURAL EFFUSION [None]
  - PNEUMONIA FUNGAL [None]
  - RENAL FAILURE ACUTE [None]
  - RENAL TUBULAR NECROSIS [None]
  - RESPIRATORY FAILURE [None]
  - URETERIC OBSTRUCTION [None]
  - VIRUS URINE TEST POSITIVE [None]
